FAERS Safety Report 4390330-4 (Version None)
Quarter: 2004Q2

REPORT INFORMATION
  Report Type: 
  Country: None (occurrence: None)
  Receive Date: 20040630
  Receipt Date: 20040625
  Transmission Date: 20050107
  Serious: Yes (Other)
  Sender: FDA-Public Use
  Company Number: TCI2004A02348

PATIENT
  Age: 50 Year
  Sex: Male

DRUGS (4)
  1. LANSOPRAZOLE [Suspect]
     Indication: GASTRIC ULCER
     Dosage: NOT INGESTED PER ORAL
     Route: 048
  2. PANSPORIN T (CEFOTIAM HEXETIL HYDROCHLORIDE) (TABLETS) [Suspect]
  3. PONTAL (MEFENAMIC ACID) (PREPARATION FOR ORAL USE (NOS)) [Concomitant]
  4. CRAVIT (LEVOFLOXACIN) (PREPARATION FOR ORAL USE (NOS)) [Concomitant]

REACTIONS (2)
  - CHOLELITHIASIS [None]
  - PANCREATIC NECROSIS [None]
